FAERS Safety Report 12704814 (Version 4)
Quarter: 2017Q1

REPORT INFORMATION
  Report Type: Spontaneous
  Country: US (occurrence: US)
  Receive Date: 20160831
  Receipt Date: 20170313
  Transmission Date: 20170428
  Serious: Yes (Other)
  Sender: FDA-Public Use
  Company Number: PHEH2016US021877

PATIENT
  Sex: Female

DRUGS (2)
  1. ZOFRAN [Suspect]
     Active Substance: ONDANSETRON HYDROCHLORIDE
     Indication: PRODUCT USED FOR UNKNOWN INDICATION
     Route: 048
  2. ZOFRAN [Suspect]
     Active Substance: ONDANSETRON HYDROCHLORIDE
     Indication: VOMITING IN PREGNANCY
     Dosage: 8 MG, QD
     Route: 065
     Dates: start: 20020716, end: 20020806

REACTIONS (4)
  - Product use issue [Unknown]
  - Gestational diabetes [Unknown]
  - Maternal exposure during pregnancy [Unknown]
  - Injury [Unknown]
